FAERS Safety Report 9391325 (Version 1)
Quarter: 2013Q3

REPORT INFORMATION
  Report Type: Spontaneous
  Country: BE (occurrence: BE)
  Receive Date: 20130709
  Receipt Date: 20130709
  Transmission Date: 20140515
  Serious: Yes (Death, Hospitalization)
  Sender: FDA-Public Use
  Company Number: BE-B.I. PHARMACEUTICALS,INC./RIDGEFIELD-2013-BL-00332BL

PATIENT
  Sex: 0

DRUGS (1)
  1. TRAJENTA [Suspect]
     Indication: DIABETES MELLITUS

REACTIONS (2)
  - General physical health deterioration [Fatal]
  - Renal failure [Unknown]
